FAERS Safety Report 4778153-5 (Version None)
Quarter: 2005Q3

REPORT INFORMATION
  Report Type: 
  Country: None (occurrence: None)
  Receive Date: 20050926
  Receipt Date: 20050919
  Transmission Date: 20060218
  Serious: Yes (Other)
  Sender: FDA-Public Use
  Company Number: 200518307GDDC

PATIENT
  Sex: Female

DRUGS (1)
  1. RIFADIN [Suspect]

REACTIONS (2)
  - RETINAL DETACHMENT [None]
  - VISUAL DISTURBANCE [None]
